FAERS Safety Report 6426086-0 (Version None)
Quarter: 2009Q4

REPORT INFORMATION
  Report Type: 
  Country: None (occurrence: None)
  Receive Date: 20091104
  Receipt Date: 20091020
  Transmission Date: 20100525
  Serious: Yes (Hospitalization)
  Sender: FDA-Public Use
  Company Number: PR-ELI_LILLY_AND_COMPANY-US200910001227

PATIENT
  Sex: Male
  Weight: 69 kg

DRUGS (4)
  1. OLANZAPINE + FLUOXETINE HCL [Suspect]
     Indication: MAJOR DEPRESSION
     Dosage: UNK, UNK
     Dates: start: 20090910, end: 20091001
  2. ATIVAN [Concomitant]
     Indication: AGITATION
     Dosage: 0.5 MG, AS NEEDED
     Route: 048
     Dates: start: 20090922
  3. ATIVAN [Concomitant]
     Dosage: 0.5 MG, DAILY (1/D)
     Dates: start: 20090924
  4. ATIVAN [Concomitant]
     Dosage: 0.5 MG, 3/D
     Route: 048
     Dates: start: 20091001

REACTIONS (1)
  - AGITATION [None]
